FAERS Safety Report 7605913-5 (Version None)
Quarter: 2011Q3

REPORT INFORMATION
  Report Type: 
  Country: None (occurrence: None)
  Receive Date: 20110712
  Receipt Date: 20110712
  Transmission Date: 20111222
  Serious: Yes (Other)
  Sender: FDA-Public Use
  Company Number: None

PATIENT
  Sex: Male

DRUGS (2)
  1. TRILEPTAL [Suspect]
     Indication: CONVULSION
     Dosage: 1 1/2 BID PO
     Route: 048
  2. TRILEPTAL [Suspect]
     Indication: ENCEPHALOPATHY
     Dosage: 1 1/2 BID PO
     Route: 048

REACTIONS (1)
  - CONVULSION [None]
